FAERS Safety Report 6422916-7 (Version None)
Quarter: 2009Q4

REPORT INFORMATION
  Report Type: 
  Country: None (occurrence: None)
  Receive Date: 20091102
  Receipt Date: 20091027
  Transmission Date: 20100525
  Serious: Yes (Death, Hospitalization, Other)
  Sender: FDA-Public Use
  Company Number: US-CELGENEUS-163-21880-09102213

PATIENT
  Age: 56 Year
  Sex: Male

DRUGS (6)
  1. REVLIMID [Suspect]
     Route: 048
     Dates: start: 20090825
  2. REVLIMID [Suspect]
     Route: 048
     Dates: start: 20090918, end: 20091024
  3. CYCLOPHOSPHAMIDE [Concomitant]
     Route: 051
     Dates: start: 20090613, end: 20090704
  4. FLUDARABINE [Concomitant]
     Route: 051
     Dates: start: 20090613, end: 20090704
  5. RITUXAN [Concomitant]
     Route: 051
     Dates: start: 20090613, end: 20090704
  6. ANTI-THYMOCYTE GLOBULIN NOS [Concomitant]
     Route: 051
     Dates: start: 20090613, end: 20090704

REACTIONS (5)
  - ACUTE GRAFT VERSUS HOST DISEASE [None]
  - CARDIAC ARREST [None]
  - PNEUMONIA [None]
  - SEPSIS [None]
  - SYNCOPE [None]
